FAERS Safety Report 15634017 (Version 1)
Quarter: 2018Q4

REPORT INFORMATION
  Report Type: Spontaneous
  Country: JP (occurrence: JP)
  Receive Date: 20181119
  Receipt Date: 20181119
  Transmission Date: 20190205
  Serious: Yes (Other)
  Sender: FDA-Public Use
  Company Number: PHHY2018JP153423

PATIENT

DRUGS (1)
  1. GRANULOCYTE COLONY STIMULATING FACTOR [Suspect]
     Active Substance: GRANULOCYTE COLONY-STIMULATING FACTOR NOS
     Indication: HAEMATOPOIETIC STEM CELL MOBILISATION
     Dosage: 400 UG/M2, QD (MORNING)
     Route: 058

REACTIONS (2)
  - Non-Hodgkin^s lymphoma [Unknown]
  - Malignant neoplasm progression [Unknown]
